FAERS Safety Report 20724965 (Version 1)
Quarter: 2022Q2

REPORT INFORMATION
  Report Type: Spontaneous
  Country: US (occurrence: US)
  Receive Date: 20220419
  Receipt Date: 20220419
  Transmission Date: 20220720
  Serious: No
  Sender: FDA-Public Use
  Company Number: US-PFIZER INC-2020429422

PATIENT
  Age: 53 Year
  Sex: Female
  Weight: 104.33 kg

DRUGS (1)
  1. CHANTIX [Suspect]
     Active Substance: VARENICLINE TARTRATE
     Indication: Smoking cessation therapy
     Dosage: UNK
     Dates: start: 2020, end: 2021

REACTIONS (7)
  - Mental disorder [Unknown]
  - Anxiety [Unknown]
  - Panic attack [Unknown]
  - Pain [Unknown]
  - Arthritis [Unknown]
  - Migraine [Unknown]
  - Personality change [Unknown]

NARRATIVE: CASE EVENT DATE: 20210501
